FAERS Safety Report 25183589 (Version 1)
Quarter: 2025Q2

REPORT INFORMATION
  Report Type: Report from Study
  Country: FR (occurrence: FR)
  Receive Date: 20250410
  Receipt Date: 20250410
  Transmission Date: 20250717
  Serious: Yes (Other)
  Sender: ABBVIE
  Company Number: FR-ABBVIE-6148396

PATIENT
  Age: 72 Year
  Sex: Female

DRUGS (1)
  1. FOSCARBIDOPA\FOSLEVODOPA [Suspect]
     Active Substance: FOSCARBIDOPA\FOSLEVODOPA
     Indication: Product used for unknown indication
     Route: 058
     Dates: start: 20250219

REACTIONS (10)
  - Fall [Not Recovered/Not Resolved]
  - Cognitive disorder [Unknown]
  - Restlessness [Unknown]
  - Asthenia [Not Recovered/Not Resolved]
  - Freezing phenomenon [Recovering/Resolving]
  - Unintentional medical device removal [Unknown]
  - Insomnia [Recovered/Resolved]
  - Agitation [Recovered/Resolved]
  - Agitation [Not Recovered/Not Resolved]
  - Drug ineffective [Unknown]

NARRATIVE: CASE EVENT DATE: 20250201
